FAERS Safety Report 14393278 (Version 1)
Quarter: 2018Q1

REPORT INFORMATION
  Report Type: Spontaneous
  Country: US (occurrence: US)
  Receive Date: 20180112
  Receipt Date: 20180112
  Transmission Date: 20180509
  Serious: No
  Sender: FDA-Public Use
  Company Number: None

PATIENT
  Age: 64 Year
  Sex: Female

DRUGS (1)
  1. IBRANCE [Suspect]
     Active Substance: PALBOCICLIB
     Dosage: 100MG QD FOR 21 DAYS ORAL
     Route: 048

REACTIONS (3)
  - Skin exfoliation [None]
  - Dry skin [None]
  - Pain in extremity [None]

NARRATIVE: CASE EVENT DATE: 20171226
